FAERS Safety Report 7908094-3 (Version None)
Quarter: 2011Q4

REPORT INFORMATION
  Report Type: 
  Country: None (occurrence: None)
  Receive Date: 20111111
  Receipt Date: 20111104
  Transmission Date: 20120403
  Serious: Yes (Disabling)
  Sender: FDA-Public Use
  Company Number: US-BIOGENIDEC-2011BI042443

PATIENT
  Age: 22 Year
  Sex: Female

DRUGS (6)
  1. HYDROMORPHONE HCL [Concomitant]
     Indication: PAIN
     Route: 048
     Dates: start: 20110120
  2. LORAZEPAM [Concomitant]
     Indication: ANXIETY
  3. TYSABRI [Suspect]
     Indication: CROHN'S DISEASE
     Route: 042
     Dates: start: 20110525
  4. SERTRALINE HYDROCHLORIDE [Concomitant]
     Indication: DEPRESSION
  5. BIRTH CONTROL PILL [Concomitant]
     Indication: CONTRACEPTION
     Route: 048
  6. SERTRALINE HYDROCHLORIDE [Concomitant]
     Indication: ANXIETY

REACTIONS (1)
  - OSTEONECROSIS [None]
